FAERS Safety Report 10033014 (Version 1)
Quarter: 2014Q1

REPORT INFORMATION
  Report Type: Report from Study
  Country: ES (occurrence: ES)
  Receive Date: 20140324
  Receipt Date: 20140324
  Transmission Date: 20141002
  Serious: Yes (Hospitalization)
  Sender: FDA-Public Use
  Company Number: ES-VERTEX PHARMACEUTICALS INC-2014-001443

PATIENT
  Age: 44 Year
  Sex: Male
  Weight: 81 kg

DRUGS (5)
  1. TELAPREVIR [Suspect]
     Indication: HEPATITIS C
     Dosage: 750 MG, TID
     Route: 048
  2. PEGINTERFERON ALFA-2A [Suspect]
     Indication: HEPATITIS C
     Route: 058
     Dates: start: 201103
  3. RIBAVIRIN [Suspect]
     Indication: HEPATITIS C
  4. RIBAVIRIN [Suspect]
  5. RIBAVIRIN [Suspect]
     Dosage: 600 MG, UNK
     Dates: start: 201103

REACTIONS (3)
  - Lung adenocarcinoma stage IV [Unknown]
  - Neutrophil count decreased [Unknown]
  - Off label use [Unknown]
